FAERS Safety Report 7344602-1 (Version None)
Quarter: 2011Q1

REPORT INFORMATION
  Report Type: 
  Country: None (occurrence: None)
  Receive Date: 20110310
  Receipt Date: 20110302
  Transmission Date: 20110831
  Serious: Yes (Hospitalization)
  Sender: FDA-Public Use
  Company Number: GB-US-EMD SERONO, INC.-7034676

PATIENT
  Sex: Female

DRUGS (3)
  1. SAIZEN [Suspect]
     Indication: GROWTH HORMONE DEFICIENCY
     Dates: start: 20101201
  2. THYROXINE [Concomitant]
  3. ORAL STEROIDS [Concomitant]
     Route: 048

REACTIONS (4)
  - FALL [None]
  - NAUSEA [None]
  - HEADACHE [None]
  - EYE PAIN [None]
